FAERS Safety Report 7725236-3 (Version None)
Quarter: 2011Q3

REPORT INFORMATION
  Report Type: 
  Country: None (occurrence: None)
  Receive Date: 20110902
  Receipt Date: 20110822
  Transmission Date: 20111222
  Serious: Yes (Hospitalization)
  Sender: FDA-Public Use
  Company Number: US-PAR PHARMACEUTICAL, INC-2011SCPR003195

PATIENT

DRUGS (7)
  1. ZOMETA [Concomitant]
     Indication: PRODUCT USED FOR UNKNOWN INDICATION
     Dosage: UNK, UNKNOWN
     Route: 065
     Dates: end: 20110706
  2. TAXOTERE [Suspect]
     Indication: CHEMOTHERAPY
     Dosage: 125 MG, UNKNOWN
     Dates: start: 20110504, end: 20110706
  3. CYCLOPHOSPHAMIDE [Suspect]
     Indication: CHEMOTHERAPY
     Dosage: 830 MG, UNKNOWN
     Dates: start: 20110504, end: 20110706
  4. DEXAMETHASONE [Suspect]
     Indication: PRODUCT USED FOR UNKNOWN INDICATION
     Dosage: UNK, UNKNOWN
     Route: 065
  5. DOXORUBICIN HCL [Suspect]
     Indication: CHEMOTHERAPY
     Dosage: 83 MG, UNKNOWN
     Dates: start: 20110504, end: 20110706
  6. NEULASTA [Suspect]
     Indication: CHEMOTHERAPY
     Dosage: UNK, UNKNOWN
     Route: 065
  7. ONDANSETRON [Suspect]
     Indication: PRODUCT USED FOR UNKNOWN INDICATION
     Dosage: UNK, UNKNOWN
     Route: 065

REACTIONS (1)
  - GASTROENTERITIS [None]
